FAERS Safety Report 11621377 (Version 1)
Quarter: 2015Q4

REPORT INFORMATION
  Report Type: Spontaneous
  Country: US (occurrence: US)
  Receive Date: 20151012
  Receipt Date: 20151012
  Transmission Date: 20160304
  Serious: No
  Sender: FDA-Public Use
  Company Number: US-AMGEN-USASP2015104452

PATIENT
  Sex: Female
  Weight: 81.63 kg

DRUGS (1)
  1. ENBREL [Suspect]
     Active Substance: ETANERCEPT
     Indication: POLYCHONDRITIS
     Dosage: 50 MG, QWK
     Route: 058
     Dates: start: 2015

REACTIONS (4)
  - Arthropathy [Unknown]
  - Joint swelling [Unknown]
  - Off label use [Unknown]
  - Injection site pain [Recovered/Resolved]

NARRATIVE: CASE EVENT DATE: 2015
